FAERS Safety Report 13063720 (Version 2)
Quarter: 2017Q1

REPORT INFORMATION
  Report Type: Spontaneous
  Country: US (occurrence: US)
  Receive Date: 20161227
  Receipt Date: 20170222
  Transmission Date: 20170428
  Serious: No
  Sender: FDA-Public Use
  Company Number: US-PFIZER INC-2016585705

PATIENT
  Age: 70 Year
  Sex: Female

DRUGS (16)
  1. FELDENE [Suspect]
     Active Substance: PIROXICAM
     Dosage: UNK
     Route: 048
  2. BACTRIM DS [Suspect]
     Active Substance: SULFAMETHOXAZOLE\TRIMETHOPRIM
     Dosage: UNK
     Route: 048
  3. NEURONTIN [Suspect]
     Active Substance: GABAPENTIN
     Dosage: UNK
     Route: 048
  4. NEXIUM [Suspect]
     Active Substance: ESOMEPRAZOLE MAGNESIUM
     Dosage: UNK
     Route: 048
  5. BIAXIN [Suspect]
     Active Substance: CLARITHROMYCIN
     Dosage: UNK
     Route: 048
  6. CLINORIL [Suspect]
     Active Substance: SULINDAC
     Dosage: UNK
     Route: 048
  7. TEQUIN [Suspect]
     Active Substance: GATIFLOXACIN
     Dosage: UNK
     Route: 048
  8. TOLECTIN [Suspect]
     Active Substance: TOLMETIN SODIUM
     Dosage: UNK
     Route: 048
  9. CLONAZEPAM. [Suspect]
     Active Substance: CLONAZEPAM
     Dosage: UNK
     Route: 048
  10. IMITREX [Suspect]
     Active Substance: SUMATRIPTAN SUCCINATE
     Dosage: UNK
  11. MECLOMEN [Suspect]
     Active Substance: MECLOFENAMATE SODIUM
     Dosage: UNK
     Route: 048
  12. DEMEROL [Suspect]
     Active Substance: MEPERIDINE HYDROCHLORIDE
     Dosage: UNK
  13. ASPIRIN. [Suspect]
     Active Substance: ASPIRIN
     Dosage: UNK
  14. LYRICA [Suspect]
     Active Substance: PREGABALIN
     Dosage: UNK
     Route: 048
  15. MORPHINE SULFATE. [Suspect]
     Active Substance: MORPHINE SULFATE
     Dosage: UNK
  16. LEVAQUIN [Suspect]
     Active Substance: LEVOFLOXACIN
     Dosage: UNK
     Route: 048

REACTIONS (1)
  - Drug hypersensitivity [Not Recovered/Not Resolved]
